FAERS Safety Report 5931622-4 (Version None)
Quarter: 2008Q4

REPORT INFORMATION
  Report Type: 
  Country: None (occurrence: None)
  Receive Date: 20081027
  Receipt Date: 20081016
  Transmission Date: 20090506
  Serious: Yes (Other)
  Sender: FDA-Public Use
  Company Number: US-JNJFOC-20080606941

PATIENT
  Sex: Female
  Weight: 70.76 kg

DRUGS (12)
  1. REMICADE [Suspect]
     Route: 042
  2. REMICADE [Suspect]
     Indication: RHEUMATOID ARTHRITIS
     Dosage: AFTER LOADING AT WEEK 0,2, AND 6
     Route: 042
  3. METHOTREXATE [Concomitant]
  4. FOLIC ACID [Concomitant]
  5. PREDNISONE TAB [Concomitant]
  6. CALCIUM VITAMIN D [Concomitant]
  7. SINGULAIR [Concomitant]
  8. ASPIRIN [Concomitant]
  9. PREVACID [Concomitant]
  10. ALEVE [Concomitant]
  11. BENICAR HCT [Concomitant]
  12. NIACIN [Concomitant]

REACTIONS (9)
  - ACQUIRED OESOPHAGEAL WEB [None]
  - BENIGN PANCREATIC NEOPLASM [None]
  - BREAST TENDERNESS [None]
  - GASTRITIS EROSIVE [None]
  - HELICOBACTER INFECTION [None]
  - HYPOKALAEMIA [None]
  - OCCULT BLOOD POSITIVE [None]
  - SEPSIS PASTEURELLA [None]
  - UPPER RESPIRATORY TRACT INFECTION [None]
